FAERS Safety Report 8567565-X (Version None)
Quarter: 2012Q3

REPORT INFORMATION
  Report Type: 
  Country: None (occurrence: None)
  Receive Date: 20120803
  Receipt Date: 20110916
  Transmission Date: 20120928
  Serious: No
  Sender: FDA-Public Use
  Company Number: US-ABBOTT-11P-163-0855514-00

PATIENT
  Sex: Male
  Weight: 113.5 kg

DRUGS (5)
  1. ASPIRIN [Concomitant]
     Indication: SUPPLEMENTATION THERAPY
  2. DOXYCYCLINE HCL [Concomitant]
     Indication: SKIN DISORDER
  3. TESTOSTERONE [Concomitant]
     Indication: BLOOD TESTOSTERONE DECREASED
     Route: 050
  4. VITAMIN D [Concomitant]
     Indication: VITAMIN SUPPLEMENTATION
  5. NIASPAN [Suspect]
     Indication: HIGH DENSITY LIPOPROTEIN INCREASED
     Dates: start: 20110101

REACTIONS (1)
  - PAIN IN EXTREMITY [None]
